FAERS Safety Report 7030358-9 (Version None)
Quarter: 2010Q4

REPORT INFORMATION
  Report Type: 
  Country: None (occurrence: None)
  Receive Date: 20101006
  Receipt Date: 20100928
  Transmission Date: 20110411
  Serious: No
  Sender: FDA-Public Use
  Company Number: TR-ASTRAZENECA-2010SE46255

PATIENT

DRUGS (4)
  1. QUETIAPINE [Suspect]
     Route: 048
  2. QUETIAPINE [Suspect]
     Dosage: DECREASED DAILY DOSAGE
     Route: 048
  3. OLANZAPINE [Suspect]
  4. OLANZAPINE [Suspect]
     Dosage: DECREASED DAILY DOSAGE

REACTIONS (2)
  - DRUG ABUSE [None]
  - LEUKOPENIA [None]
